FAERS Safety Report 5888488-0 (Version None)
Quarter: 2008Q3

REPORT INFORMATION
  Report Type: 
  Country: None (occurrence: None)
  Receive Date: 20080918
  Receipt Date: 20080909
  Transmission Date: 20090109
  Serious: Yes (Other)
  Sender: FDA-Public Use
  Company Number: US-BAYER-200833216NA

PATIENT
  Age: 57 Year
  Sex: Male
  Weight: 93 kg

DRUGS (3)
  1. ULTRAVIST 370 [Suspect]
     Indication: COMPUTERISED TOMOGRAM THORAX
     Dosage: TOTAL DAILY DOSE: 120 ML  UNIT DOSE: 500 ML
     Route: 042
     Dates: start: 20080909, end: 20080909
  2. METFORMIN HCL [Concomitant]
  3. CONTRAST MEDIA [Concomitant]
     Indication: COMPUTERISED TOMOGRAM THORAX
     Route: 048
     Dates: start: 20080909, end: 20080909

REACTIONS (1)
  - ORBITAL OEDEMA [None]
